FAERS Safety Report 13537773 (Version 3)
Quarter: 2017Q2

REPORT INFORMATION
  Report Type: Spontaneous
  Country: US (occurrence: US)
  Receive Date: 20170511
  Receipt Date: 20170621
  Transmission Date: 20170830
  Serious: Yes (Hospitalization)
  Sender: FDA-Public Use
  Company Number: US-JAZZ-2017-US-005978

PATIENT
  Age: 50 Year
  Sex: Female

DRUGS (2)
  1. PRIALT [Suspect]
     Active Substance: ZICONOTIDE ACETATE
     Indication: SPINAL PAIN
     Dosage: UNK ?G, QH
     Route: 037
     Dates: start: 20170504
  2. HYDROMORPHONE [Suspect]
     Active Substance: HYDROMORPHONE
     Indication: SPINAL PAIN
     Dosage: UNK ?G, QH
     Route: 037

REACTIONS (8)
  - Psychotic disorder [Recovered/Resolved]
  - Urinary incontinence [Unknown]
  - Drug ineffective [Unknown]
  - Gait disturbance [Unknown]
  - Fall [Unknown]
  - Burning sensation [Unknown]
  - Pain in extremity [Unknown]
  - Nerve injury [Recovered/Resolved]

NARRATIVE: CASE EVENT DATE: 201306
